FAERS Safety Report 9624172 (Version 1)
Quarter: 2013Q4

REPORT INFORMATION
  Report Type: Spontaneous
  Country: US (occurrence: US)
  Receive Date: 20131015
  Receipt Date: 20131015
  Transmission Date: 20140711
  Serious: No
  Sender: FDA-Public Use
  Company Number: US-TARO-2013P1000423

PATIENT
  Age: 50 Year
  Sex: Female
  Weight: 52.62 kg

DRUGS (11)
  1. HYDROCORTISONE VALERATE CREAM USP 0.2% [Suspect]
     Route: 048
     Dates: start: 20130108, end: 20130108
  2. LOPERAMIDE [Concomitant]
  3. AMITRIPTYLINE [Concomitant]
  4. CLONAZEPAM [Concomitant]
  5. ^MICROGESTERONE^ [Concomitant]
  6. METOPROLOL ES [Concomitant]
  7. AZOPT EYE DROPS [Concomitant]
  8. LANTANOPROST EYE DROPS [Concomitant]
  9. VITAMIN B12 [Concomitant]
  10. VITAMIN D [Concomitant]
  11. PROBIOTIC [Concomitant]

REACTIONS (2)
  - Glossodynia [Recovered/Resolved]
  - Accidental exposure to product [Recovered/Resolved]
